FAERS Safety Report 9894690 (Version 3)
Quarter: 2014Q1

REPORT INFORMATION
  Report Type: Spontaneous
  Country: US (occurrence: US)
  Receive Date: 20140213
  Receipt Date: 20140219
  Transmission Date: 20141002
  Serious: Yes (Hospitalization, Other)
  Sender: FDA-Public Use
  Company Number: US-GILEAD-2014-0093960

PATIENT
  Sex: Male

DRUGS (2)
  1. LETAIRIS [Suspect]
     Indication: PULMONARY ARTERIAL HYPERTENSION
     Dosage: 5 MG, QD
     Route: 065
     Dates: start: 20130711
  2. LETAIRIS [Suspect]
     Indication: BRONCHOPULMONARY DYSPLASIA

REACTIONS (4)
  - Hepatoblastoma [Unknown]
  - Gastrooesophageal reflux disease [Unknown]
  - Tracheostomy [Unknown]
  - Pulmonary hypertension [Unknown]
